FAERS Safety Report 24612119 (Version 1)
Quarter: 2024Q4

REPORT INFORMATION
  Report Type: Spontaneous
  Country: CN (occurrence: CN)
  Receive Date: 20241113
  Receipt Date: 20241113
  Transmission Date: 20250115
  Serious: Yes (Life-Threatening, Hospitalization, Other)
  Sender: RISING PHARMACEUTICALS
  Company Number: CN-RISINGPHARMA-CN-2024RISLIT00438

PATIENT
  Age: 37 Year
  Sex: Female
  Weight: 65 kg

DRUGS (13)
  1. SUFENTANIL CITRATE [Suspect]
     Active Substance: SUFENTANIL CITRATE
     Indication: Analgesic therapy
     Route: 042
     Dates: start: 202307
  2. MORPHINE SULFATE [Suspect]
     Active Substance: MORPHINE SULFATE
     Indication: Spinal anaesthesia
     Route: 037
  3. PROPOFOL [Suspect]
     Active Substance: PROPOFOL
     Indication: Product used for unknown indication
     Route: 065
  4. OXYTOCIN [Concomitant]
     Active Substance: OXYTOCIN
     Indication: Product used for unknown indication
     Route: 042
  5. NOREPINEPHRINE [Concomitant]
     Active Substance: NOREPINEPHRINE\NOREPINEPHRINE BITARTRATE
     Indication: Product used for unknown indication
     Route: 042
  6. DOPAMINE [Concomitant]
     Active Substance: DOPAMINE HYDROCHLORIDE
     Indication: Product used for unknown indication
     Route: 042
  7. NITROGLYCERIN [Concomitant]
     Active Substance: NITROGLYCERIN
     Indication: Product used for unknown indication
     Route: 042
  8. ALBUMIN HUMAN [Concomitant]
     Active Substance: ALBUMIN HUMAN
     Indication: Product used for unknown indication
     Route: 042
  9. HUMAN RED BLOOD CELL [Concomitant]
     Active Substance: HUMAN RED BLOOD CELL
     Indication: Product used for unknown indication
     Route: 065
  10. BUPIVACAINE [Concomitant]
     Active Substance: BUPIVACAINE
     Indication: Spinal anaesthesia
     Route: 037
  11. NALBUPHINE [Concomitant]
     Active Substance: NALBUPHINE
     Indication: Product used for unknown indication
     Route: 037
  12. FUROSEMIDE [Concomitant]
     Active Substance: FUROSEMIDE
     Indication: Product used for unknown indication
     Route: 065
  13. ROPIVACAINE [Concomitant]
     Active Substance: ROPIVACAINE
     Route: 065

REACTIONS (5)
  - Loss of consciousness [Recovered/Resolved]
  - Respiratory depression [Recovered/Resolved]
  - Hypercapnia [Recovered/Resolved]
  - Drug interaction [Unknown]
  - Product use in unapproved indication [Unknown]
